FAERS Safety Report 11675265 (Version 2)
Quarter: 2015Q4

REPORT INFORMATION
  Report Type: Report from Study
  Country: FR (occurrence: FR)
  Receive Date: 20151028
  Receipt Date: 20151101
  Transmission Date: 20160304
  Serious: No
  Sender: FDA-Public Use
  Company Number: FR-BRISTOL-MYERS SQUIBB COMPANY-BMS-2015-070683

PATIENT
  Sex: Female

DRUGS (2)
  1. WARFARIN SODIUM. [Suspect]
     Active Substance: WARFARIN SODIUM
     Indication: EMBOLISM VENOUS
  2. WARFARIN SODIUM. [Suspect]
     Active Substance: WARFARIN SODIUM
     Indication: ATRIAL FIBRILLATION
     Route: 065

REACTIONS (2)
  - International normalised ratio fluctuation [Unknown]
  - Renal impairment [Unknown]
